FAERS Safety Report 16214087 (Version 2)
Quarter: 2020Q1

REPORT INFORMATION
  Report Type: Spontaneous
  Country: US (occurrence: US)
  Receive Date: 20190418
  Receipt Date: 20200330
  Transmission Date: 20200409
  Serious: Yes (Other)
  Sender: FDA-Public Use
  Company Number: US-GILEAD-2019-0402867

PATIENT
  Age: 39 Year
  Sex: Male

DRUGS (21)
  1. ATRIPLA [Suspect]
     Active Substance: EFAVIRENZ\EMTRICITABINE\TENOFOVIR DISOPROXIL FUMARATE
     Indication: HIV INFECTION
     Dosage: 1 DOSAGE FORM
     Route: 048
     Dates: start: 20070207, end: 201501
  2. DILTIAZEM. [Concomitant]
     Active Substance: DILTIAZEM
  3. ALPRAZOLAM. [Concomitant]
     Active Substance: ALPRAZOLAM
  4. HYDROCHLOROTHIAZIDE. [Concomitant]
     Active Substance: HYDROCHLOROTHIAZIDE
  5. TRUVADA [Suspect]
     Active Substance: EMTRICITABINE\TENOFOVIR DISOPROXIL FUMARATE
     Dosage: 1 DOSAGE FORM
     Route: 048
     Dates: start: 201706, end: 201801
  6. FAMOTIDINE. [Concomitant]
     Active Substance: FAMOTIDINE
  7. OMEPRAZOLE. [Concomitant]
     Active Substance: OMEPRAZOLE
  8. ADDERALL [Concomitant]
     Active Substance: AMPHETAMINE ASPARTATE\AMPHETAMINE SULFATE\DEXTROAMPHETAMINE SACCHARATE\DEXTROAMPHETAMINE SULFATE
  9. DEXTROAMPHET SACCHARAT, AMPHET ASPARTATE, DEXTROAMPHET SULFATE AND AMPHET SULFAT [Concomitant]
     Active Substance: AMPHETAMINE ASPARTATE\AMPHETAMINE SULFATE\DEXTROAMPHETAMINE SACCHARATE\DEXTROAMPHETAMINE SULFATE
  10. TRUVADA [Suspect]
     Active Substance: EMTRICITABINE\TENOFOVIR DISOPROXIL FUMARATE
     Indication: HIV INFECTION
     Dosage: 1 DOSAGE FORM, QD
     Route: 048
     Dates: start: 2015, end: 2016
  11. GENVOYA [Concomitant]
     Active Substance: COBICISTAT\ELVITEGRAVIR\EMTRICITABINE\TENOFOVIR ALAFENAMIDE FUMARATE
  12. ZOLPIDEM [Concomitant]
     Active Substance: ZOLPIDEM TARTRATE
  13. ALFUZOSIN [Concomitant]
     Active Substance: ALFUZOSIN
  14. FLUTICASONE. [Concomitant]
     Active Substance: FLUTICASONE
  15. AMBIEN [Concomitant]
     Active Substance: ZOLPIDEM TARTRATE
  16. ANDROGEL [Concomitant]
     Active Substance: TESTOSTERONE
  17. ACYCLOVIR [ACICLOVIR SODIUM] [Concomitant]
     Active Substance: ACYCLOVIR
  18. FINASTERIDE. [Concomitant]
     Active Substance: FINASTERIDE
  19. AZELASTINE. [Concomitant]
     Active Substance: AZELASTINE HYDROCHLORIDE
  20. TERAZOSIN [Concomitant]
     Active Substance: TERAZOSIN HYDROCHLORIDE
  21. ATRIPLA [Suspect]
     Active Substance: EFAVIRENZ\EMTRICITABINE\TENOFOVIR DISOPROXIL FUMARATE
     Dosage: 1 UNK
     Route: 048
     Dates: start: 20150207, end: 201801

REACTIONS (8)
  - Anhedonia [Unknown]
  - Chronic kidney disease [Not Recovered/Not Resolved]
  - Bone density decreased [Unknown]
  - Tooth loss [Unknown]
  - Economic problem [Unknown]
  - Anxiety [Unknown]
  - Emotional distress [Unknown]
  - Pain [Unknown]

NARRATIVE: CASE EVENT DATE: 201501
